FAERS Safety Report 18499645 (Version 4)
Quarter: 2023Q1

REPORT INFORMATION
  Report Type: Spontaneous
  Country: CA (occurrence: CA)
  Receive Date: 20201112
  Receipt Date: 20230329
  Transmission Date: 20230418
  Serious: Yes (Hospitalization, Other)
  Sender: FDA-Public Use
  Company Number: CA-SAMSUNG BIOEPIS-SB-2020-33950

PATIENT
  Age: 68 Year
  Sex: Female

DRUGS (11)
  1. ETANERCEPT [Suspect]
     Active Substance: ETANERCEPT
     Indication: Psoriatic arthropathy
     Route: 058
  2. ETANERCEPT [Suspect]
     Active Substance: ETANERCEPT
     Route: 058
  3. ALLANTOIN [Concomitant]
     Active Substance: ALLANTOIN
     Indication: Product used for unknown indication
     Dosage: UNKNOWN
     Route: 065
  4. CELEBREX [Concomitant]
     Active Substance: CELECOXIB
     Indication: Product used for unknown indication
     Dosage: UNKNOWN
     Route: 065
  5. DESOXIMETASONE [Concomitant]
     Active Substance: DESOXIMETASONE
     Indication: Product used for unknown indication
     Dosage: UNKNOWN
     Route: 065
  6. ENBREL [Concomitant]
     Active Substance: ETANERCEPT
     Indication: Product used for unknown indication
     Dosage: UNKNOWN
     Route: 065
  7. IBUPROFEN [Concomitant]
     Active Substance: IBUPROFEN
     Indication: Product used for unknown indication
     Dosage: UNKNOWN
     Route: 065
  8. METHOTREXATE [Concomitant]
     Active Substance: METHOTREXATE
     Indication: Product used for unknown indication
     Dosage: UNKNOWN
     Route: 058
  9. NAPROXEN [Concomitant]
     Active Substance: NAPROXEN
     Indication: Product used for unknown indication
     Dosage: UNKNOWN
     Route: 065
  10. PREDNISONE [Concomitant]
     Active Substance: PREDNISONE
     Indication: Product used for unknown indication
     Dosage: UNKNOWN
     Route: 065
  11. TYLENOL [Concomitant]
     Active Substance: ACETAMINOPHEN
     Indication: Arthritis
     Dosage: UNKNOWN
     Route: 065

REACTIONS (19)
  - Cardiac arrest [Unknown]
  - Dyspnoea exertional [Unknown]
  - Hypoaesthesia oral [Unknown]
  - Influenza [Unknown]
  - Injection site pain [Unknown]
  - Nausea [Unknown]
  - Osteoarthritis [Unknown]
  - Platelet count abnormal [Unknown]
  - Pneumonia [Unknown]
  - Psoriasis [Unknown]
  - Renal disorder [Unknown]
  - Sepsis [Unknown]
  - Visual impairment [Unknown]
  - Ventricle rupture [Unknown]
  - Injection site discharge [Unknown]
  - Localised infection [Unknown]
  - Osteomyelitis [Unknown]
  - Incorrect dose administered by product [Unknown]
  - Product administration error [Unknown]
